FAERS Safety Report 10615962 (Version 1)
Quarter: 2014Q4

REPORT INFORMATION
  Report Type: Spontaneous
  Country: US (occurrence: US)
  Receive Date: 20141201
  Receipt Date: 20141201
  Transmission Date: 20150529
  Serious: No
  Sender: FDA-Public Use
  Company Number: US-TEVA-525512USA

PATIENT
  Age: 46 Year
  Sex: Female
  Weight: 51.3 kg

DRUGS (9)
  1. VITAMIN C [Concomitant]
     Active Substance: ASCORBIC ACID
     Indication: VITAMIN SUPPLEMENTATION
  2. MULTIVITAMIN [Concomitant]
     Active Substance: VITAMINS
     Indication: VITAMIN SUPPLEMENTATION
  3. VITAMIN B COMPLEX [Concomitant]
     Active Substance: CYANOCOBALAMIN\DEXPANTHENOL\NIACINAMIDE\PYRIDOXINE HYDROCHLORIDE\RIBOFLAVIN 5^-PHOSPHATE SODIUM\THIAMINE HYDROCHLORIDE\VITAMIN B COMPLEX
     Indication: VITAMIN SUPPLEMENTATION
  4. PARAGARD T380A [Suspect]
     Active Substance: COPPER
     Indication: CONTRACEPTION
     Route: 015
     Dates: start: 20141120, end: 20141124
  5. TURMERIC [Concomitant]
     Active Substance: TURMERIC
     Indication: PHYTOTHERAPY
  6. CALCIUM/MAGNESIUM/VITAMIN D [Concomitant]
     Indication: MINERAL SUPPLEMENTATION
  7. OMEGA 3-6-9 [Concomitant]
     Indication: NUTRITIONAL SUPPLEMENTATION
  8. SELENIUM [Concomitant]
     Active Substance: SELENIUM
     Indication: MINERAL SUPPLEMENTATION
  9. QUERCETIN [Concomitant]
     Active Substance: QUERCETIN
     Indication: PHYTOTHERAPY

REACTIONS (1)
  - Device expulsion [Recovered/Resolved]

NARRATIVE: CASE EVENT DATE: 20141124
